FAERS Safety Report 14011994 (Version 1)
Quarter: 2017Q3

REPORT INFORMATION
  Report Type: Spontaneous
  Country: GB (occurrence: GB)
  Receive Date: 20170926
  Receipt Date: 20170926
  Transmission Date: 20171128
  Serious: Yes (Other)
  Sender: FDA-Public Use
  Company Number: GB-BAYER-2017-176902

PATIENT
  Age: 54 Year
  Sex: Female
  Weight: 81 kg

DRUGS (8)
  1. QUETIAPINE. [Concomitant]
     Active Substance: QUETIAPINE
     Dosage: UNK
  2. HYOSCINE BUTYLBROMIDE [Concomitant]
     Active Substance: BUTYLSCOPOLAMINE
     Dosage: UNK
  3. AMITRIPTYLINE [Concomitant]
     Active Substance: AMITRIPTYLINE
     Dosage: UNK
  4. CIPROFLOXACIN. [Suspect]
     Active Substance: CIPROFLOXACIN
     Indication: RENAL ABSCESS
     Dosage: 400 MG, BID
     Route: 042
     Dates: start: 20170825, end: 20170830
  5. ENOXAPARIN [Concomitant]
     Active Substance: ENOXAPARIN
     Dosage: UNK
  6. CALCICHEW D3 [Concomitant]
     Active Substance: CALCIUM\CHOLECALCIFEROL
     Dosage: UNK
  7. MIRTAZAPINE. [Concomitant]
     Active Substance: MIRTAZAPINE
     Dosage: UNK
  8. METRONIDAZOLE. [Suspect]
     Active Substance: METRONIDAZOLE
     Indication: RENAL ABSCESS
     Dosage: 500 MG, TID
     Route: 042
     Dates: start: 20170825, end: 20170830

REACTIONS (4)
  - Administration site swelling [Unknown]
  - Vulvovaginal swelling [Unknown]
  - Blister [Recovering/Resolving]
  - Chemical eye injury [None]

NARRATIVE: CASE EVENT DATE: 20170829
